FAERS Safety Report 6058657-8 (Version None)
Quarter: 2009Q1

REPORT INFORMATION
  Report Type: 
  Country: None (occurrence: None)
  Receive Date: 20090130
  Receipt Date: 20090116
  Transmission Date: 20090719
  Serious: Yes (Hospitalization)
  Sender: FDA-Public Use
  Company Number: US-PFIZER INC-2009156761

PATIENT
  Sex: Female
  Weight: 66 kg

DRUGS (4)
  1. SUNITINIB MALATE [Suspect]
     Indication: BREAST CANCER FEMALE
     Dosage: 12.5 MG, 3X/DAY
     Route: 048
     Dates: start: 20080918, end: 20090114
  2. ZOMETA [Concomitant]
     Dosage: UNK
     Route: 042
     Dates: start: 20080917
  3. ATIVAN [Concomitant]
     Dosage: UNK
     Route: 048
     Dates: start: 20080906
  4. LOPERAMIDE HYDROCHLORIDE [Concomitant]
     Dosage: UNK
     Route: 048
     Dates: start: 20081117

REACTIONS (1)
  - ANAL FISTULA [None]
